FAERS Safety Report 5079101-3 (Version None)
Quarter: 2006Q3

REPORT INFORMATION
  Report Type: 
  Country: None (occurrence: None)
  Receive Date: 20060808
  Receipt Date: 20060704
  Transmission Date: 20061208
  Serious: Yes (Death, Hospitalization)
  Sender: FDA-Public Use
  Company Number: GXKR2006GB04244

PATIENT
  Age: 73 Year
  Sex: Female

DRUGS (9)
  1. ATORVASTATIN (NGX) (ATORVASTATIN) [Suspect]
     Dosage: 10 MG, QD
  2. DEXTROPROPOXYPHENE-PARACETAMOL(NGX)(DEXTROPROPOXYPHENE, PARACETAMOL) [Suspect]
  3. AMLODIPINE [Concomitant]
  4. ASPIRIN [Concomitant]
  5. BENDROFLUAZIDE (BENDROFLUMETHIAZIDE) [Concomitant]
  6. DOXAZOSIN (DOXAZOSIN) [Concomitant]
  7. GAVISCON [Concomitant]
  8. LANSOPRAZOLE [Concomitant]
  9. RAMIPRIL [Concomitant]

REACTIONS (3)
  - HEPATIC FAILURE [None]
  - HEPATIC NECROSIS [None]
  - HEPATITIS ACUTE [None]
